FAERS Safety Report 9444780 (Version 2)
Quarter: 2013Q3

REPORT INFORMATION
  Report Type: Spontaneous
  Country: TW (occurrence: TW)
  Receive Date: 20130807
  Receipt Date: 20130814
  Transmission Date: 20140515
  Serious: Yes (Other)
  Sender: FDA-Public Use
  Company Number: TW-RANBAXY-2013RR-71895

PATIENT
  Sex: Female

DRUGS (5)
  1. SERTRALINE [Suspect]
     Indication: EMOTIONAL DISTRESS
     Dosage: 300 MG/DAY
     Route: 065
  2. SERTRALINE [Interacting]
     Indication: EMOTIONAL DISTRESS
     Dosage: 300 MG/DAY
     Route: 065
  3. CLOZAPINE [Interacting]
     Indication: SCHIZOPHRENIA
     Dosage: 400 MG/DAY
     Route: 065
  4. CLOZAPINE [Interacting]
     Indication: SCHIZOPHRENIA
     Dosage: 350 MG/DAY
     Route: 065
  5. ESCITALOPRAM [Suspect]
     Indication: EMOTIONAL DISTRESS
     Dosage: 20 MG/DAY
     Route: 065

REACTIONS (5)
  - Obsessive-compulsive disorder [Recovering/Resolving]
  - Condition aggravated [Recovering/Resolving]
  - Drug ineffective [Unknown]
  - Nausea [Unknown]
  - Potentiating drug interaction [Unknown]
